FAERS Safety Report 14492293 (Version 1)
Quarter: 2018Q1

REPORT INFORMATION
  Report Type: Report from Study
  Country: None (occurrence: TR)
  Receive Date: 20180206
  Receipt Date: 20180206
  Transmission Date: 20180509
  Serious: Yes (Other)
  Sender: FDA-Public Use
  Company Number: TR-ABBVIE-18K-161-2243676-00

PATIENT
  Age: 51 Year
  Sex: Female
  Weight: 95 kg

DRUGS (3)
  1. REFRESH [Concomitant]
     Active Substance: UNSPECIFIED INGREDIENT
     Indication: XEROPHTHALMIA
     Dates: start: 2013
  2. HUMIRA [Suspect]
     Active Substance: ADALIMUMAB
     Indication: RHEUMATOID ARTHRITIS
     Route: 058
     Dates: start: 20170728
  3. DESMONT [Concomitant]
     Active Substance: DESLORATADINE\MONTELUKAST SODIUM
     Indication: ASTHMA
     Route: 048
     Dates: start: 2013

REACTIONS (8)
  - Gingival swelling [Not Recovered/Not Resolved]
  - Lymphadenopathy [Recovered/Resolved]
  - Hypertension [Not Recovered/Not Resolved]
  - Lymph gland infection [Recovered/Resolved]
  - Eye infection [Recovered/Resolved]
  - Lymph gland infection [Recovering/Resolving]
  - Goitre [Not Recovered/Not Resolved]
  - Hyperglycaemia [Not Recovered/Not Resolved]

NARRATIVE: CASE EVENT DATE: 201710
